FAERS Safety Report 6837696-0 (Version None)
Quarter: 2010Q3

REPORT INFORMATION
  Report Type: 
  Country: None (occurrence: None)
  Receive Date: 20100713
  Receipt Date: 20070518
  Transmission Date: 20110219
  Serious: No
  Sender: FDA-Public Use
  Company Number: US-PFIZER INC-2007040749

PATIENT
  Sex: Female
  Weight: 50.909 kg

DRUGS (3)
  1. CHANTIX [Suspect]
     Indication: SMOKING CESSATION THERAPY
     Route: 048
     Dates: start: 20070507
  2. DIAZEPAM [Concomitant]
  3. ZOLOFT [Concomitant]

REACTIONS (2)
  - CONSTIPATION [None]
  - RESPIRATORY TRACT CONGESTION [None]
